FAERS Safety Report 14333976 (Version 1)
Quarter: 2017Q4

REPORT INFORMATION
  Report Type: Spontaneous
  Country: PK (occurrence: PK)
  Receive Date: 20171228
  Receipt Date: 20171228
  Transmission Date: 20180321
  Serious: Yes (Other)
  Sender: FDA-Public Use
  Company Number: PK-ROCHE-2046316

PATIENT
  Age: 67 Year
  Sex: Female
  Weight: 43 kg

DRUGS (6)
  1. AVASTIN [Suspect]
     Active Substance: BEVACIZUMAB
     Indication: LUNG NEOPLASM MALIGNANT
     Route: 065
  2. OXALIPLATIN. [Concomitant]
     Active Substance: OXALIPLATIN
  3. IRINOTECAN [Concomitant]
     Active Substance: IRINOTECAN
  4. FLUOROURACIL. [Concomitant]
     Active Substance: FLUOROURACIL
  5. CETUXIMAB. [Concomitant]
     Active Substance: CETUXIMAB
  6. FOLINIC ACID [Concomitant]
     Active Substance: LEUCOVORIN

REACTIONS (1)
  - Colon cancer [Unknown]
